FAERS Safety Report 19106176 (Version 2)
Quarter: 2021Q2

REPORT INFORMATION
  Report Type: Spontaneous
  Country: US (occurrence: US)
  Receive Date: 20210407
  Receipt Date: 20210608
  Transmission Date: 20210717
  Serious: No
  Sender: FDA-Public Use
  Company Number: US-ALXN-A202104283

PATIENT
  Age: 49 Year
  Sex: Female

DRUGS (1)
  1. STRENSIQ [Suspect]
     Active Substance: ASFOTASE ALFA
     Indication: PRODUCT USED FOR UNKNOWN INDICATION
     Dosage: 2 MG/KG, TIW
     Route: 065

REACTIONS (4)
  - Blood alkaline phosphatase decreased [Unknown]
  - Symptom recurrence [Unknown]
  - Therapeutic product effect decreased [Unknown]
  - Blood phosphorus increased [Unknown]
